FAERS Safety Report 5274323-0 (Version None)
Quarter: 2007Q1

REPORT INFORMATION
  Report Type: 
  Country: None (occurrence: None)
  Receive Date: 20070323
  Receipt Date: 20070311
  Transmission Date: 20070707
  Serious: Yes (Hospitalization, Other)
  Sender: FDA-Public Use
  Company Number: PR-AMGEN-STX214628

PATIENT
  Sex: Female

DRUGS (2)
  1. ENBREL [Suspect]
     Indication: RHEUMATOID ARTHRITIS
     Route: 058
     Dates: start: 20040701
  2. METHOTREXATE [Concomitant]
     Route: 065
     Dates: start: 20060901

REACTIONS (3)
  - HAND DEFORMITY [None]
  - INJECTION SITE RASH [None]
  - KNEE ARTHROPLASTY [None]
